FAERS Safety Report 18458812 (Version 2)
Quarter: 2021Q2

REPORT INFORMATION
  Report Type: Spontaneous
  Country: US (occurrence: US)
  Receive Date: 20201103
  Receipt Date: 20210401
  Transmission Date: 20210717
  Serious: Yes (Hospitalization)
  Sender: FDA-Public Use
  Company Number: US-NOVOPROD-762302

PATIENT
  Age: 83 Year
  Sex: Female

DRUGS (1)
  1. RYBELSUS [Suspect]
     Active Substance: SEMAGLUTIDE
     Indication: DIABETES MELLITUS MANAGEMENT
     Dosage: 7 MG
     Route: 048
     Dates: start: 202006, end: 202102

REACTIONS (2)
  - Blood glucose increased [Not Recovered/Not Resolved]
  - Volvulus [Recovered/Resolved]

NARRATIVE: CASE EVENT DATE: 20201011
